FAERS Safety Report 25997783 (Version 1)
Quarter: 2025Q4

REPORT INFORMATION
  Report Type: Spontaneous
  Country: US (occurrence: US)
  Receive Date: 20251105
  Receipt Date: 20251105
  Transmission Date: 20260117
  Serious: No
  Sender: ROCHE
  Company Number: US-ROCHE-10000424624

PATIENT
  Sex: Female

DRUGS (10)
  1. ESBRIET [Suspect]
     Active Substance: PIRFENIDONE
     Indication: Idiopathic pulmonary fibrosis
     Route: 065
  2. ASPIRIN [Concomitant]
     Active Substance: ASPIRIN
  3. DILTIAZEM HC [Concomitant]
  4. FUROSEMIDE [Concomitant]
     Active Substance: FUROSEMIDE
  5. LEVOTHYROXINE [Concomitant]
     Active Substance: LEVOTHYROXINE
  6. LISINOPRIL [Concomitant]
     Active Substance: LISINOPRIL
  7. PANTOPRAZOLE [Concomitant]
     Active Substance: PANTOPRAZOLE
  8. PRAVASTATIN [Concomitant]
     Active Substance: PRAVASTATIN
  9. SPIRONOLACTO [Concomitant]
  10. TYLENOL [Concomitant]
     Active Substance: ACETAMINOPHEN

REACTIONS (3)
  - Decreased appetite [Unknown]
  - Weight decreased [Unknown]
  - Vomiting [Unknown]
